FAERS Safety Report 16806330 (Version 1)
Quarter: 2019Q3

REPORT INFORMATION
  Report Type: Spontaneous
  Country: US (occurrence: US)
  Receive Date: 20190913
  Receipt Date: 20190913
  Transmission Date: 20191005
  Serious: No
  Sender: FDA-Public Use
  Company Number: US-PERRIGO-19US001998

PATIENT
  Age: 73 Year
  Sex: Female
  Weight: 70.3 kg

DRUGS (1)
  1. MINOXIDIL. [Suspect]
     Active Substance: MINOXIDIL
     Indication: ALOPECIA
     Dosage: 1 ML, BID
     Route: 061
     Dates: start: 201902

REACTIONS (1)
  - Condition aggravated [Recovered/Resolved]

NARRATIVE: CASE EVENT DATE: 20190212
